FAERS Safety Report 24696230 (Version 1)
Quarter: 2024Q4

REPORT INFORMATION
  Report Type: Spontaneous
  Country: CN (occurrence: CN)
  Receive Date: 20241204
  Receipt Date: 20241204
  Transmission Date: 20250114
  Serious: Yes (Other)
  Sender: JIANGSU HENGRUI MEDICINE CO., LTD.
  Company Number: CN-Jiangsu Hengrui Medicine Co., Ltd.-2166459

PATIENT
  Age: 36 Year
  Sex: Female
  Weight: 47 kg

DRUGS (1)
  1. FONDAPARINUX SODIUM [Suspect]
     Active Substance: FONDAPARINUX SODIUM
     Indication: Fibrin D dimer increased
     Dates: start: 20241107, end: 20241114

REACTIONS (2)
  - Injection site pruritus [Recovering/Resolving]
  - Hepatic function abnormal [Recovering/Resolving]

NARRATIVE: CASE EVENT DATE: 20241114
